FAERS Safety Report 13931967 (Version 1)
Quarter: 2017Q3

REPORT INFORMATION
  Report Type: Spontaneous
  Country: DE (occurrence: DE)
  Receive Date: 20170904
  Receipt Date: 20170904
  Transmission Date: 20171127
  Serious: Yes (Death, Life-Threatening, Hospitalization, Other)
  Sender: FDA-Public Use
  Company Number: DE-TORRENT-00007007

PATIENT
  Sex: Female

DRUGS (3)
  1. IBUPROFEN. [Suspect]
     Active Substance: IBUPROFEN
  2. QUETIAPINE. [Suspect]
     Active Substance: QUETIAPINE
  3. MIRTAZAPINE 30 MG [Suspect]
     Active Substance: MIRTAZAPINE

REACTIONS (9)
  - Loss of consciousness [Unknown]
  - Hypotension [Unknown]
  - Respiratory failure [Fatal]
  - Acute respiratory distress syndrome [Unknown]
  - Completed suicide [Fatal]
  - Seizure [Unknown]
  - Toxicity to various agents [Unknown]
  - Overdose [Unknown]
  - Hypoxia [Unknown]
